FAERS Safety Report 13605047 (Version 1)
Quarter: 2017Q2

REPORT INFORMATION
  Report Type: Spontaneous
  Country: US (occurrence: US)
  Receive Date: 20170602
  Receipt Date: 20170602
  Transmission Date: 20170830
  Serious: No
  Sender: FDA-Public Use
  Company Number: US-NOVEN PHARMACEUTICALS, INC.-US2016002273

PATIENT

DRUGS (3)
  1. DAYTRANA [Suspect]
     Active Substance: METHYLPHENIDATE
     Indication: ATTENTION DEFICIT/HYPERACTIVITY DISORDER
     Dosage: 40 MG (USING TWO 20 MG PATCHES TO MAKE A TOTAL DOSE OF 40 MG, AS PRESCRIBED), UNKNOWN
     Route: 062
     Dates: start: 2007
  2. ZOLOFT [Concomitant]
     Active Substance: SERTRALINE HYDROCHLORIDE
     Indication: DEPRESSION
     Dosage: 100 MG, QD
  3. DAYTRANA [Suspect]
     Active Substance: METHYLPHENIDATE
     Dosage: 40 MG (USING TWO 20 MG PATCHES TO MAKE A TOTAL DOSE OF 40 MG, AS PRESCRIBED), UNKNOWN
     Route: 062

REACTIONS (8)
  - Wrong technique in product usage process [Not Recovered/Not Resolved]
  - Feeling abnormal [Unknown]
  - Off label use [Unknown]
  - Headache [Unknown]
  - Drug dose omission [Recovered/Resolved]
  - Disturbance in attention [Unknown]
  - Prescribed overdose [Not Recovered/Not Resolved]
  - Psychomotor hyperactivity [Unknown]
